FAERS Safety Report 4839040-7 (Version None)
Quarter: 2005Q4

REPORT INFORMATION
  Report Type: 
  Country: None (occurrence: None)
  Receive Date: 20051024
  Receipt Date: 20050815
  Transmission Date: 20060501
  Serious: Yes (Other)
  Sender: FDA-Public Use
  Company Number: 215760

PATIENT
  Age: 24 Year
  Sex: Male

DRUGS (7)
  1. XOLAIR [Suspect]
     Indication: ASTHMA
     Dosage: 375 MG,Q2W
     Dates: start: 20041101, end: 20050629
  2. ADVAIR DISKUS 100/50 [Concomitant]
  3. SINGULAIR [Concomitant]
  4. ALBUTEROL (ALBUTEROL, ALBUTEROL SULFATE) [Concomitant]
  5. PREDNISONE [Concomitant]
  6. ALLEGRA [Concomitant]
  7. ELIDEL [Concomitant]

REACTIONS (1)
  - HODGKIN'S DISEASE [None]
